FAERS Safety Report 16319647 (Version 1)
Quarter: 2019Q2

REPORT INFORMATION
  Report Type: Spontaneous
  Country: US (occurrence: US)
  Receive Date: 20190516
  Receipt Date: 20190516
  Transmission Date: 20190711
  Serious: Yes (Other)
  Sender: FDA-Public Use
  Company Number: US-TEVA-2019-US-1049565

PATIENT
  Age: 49 Year
  Sex: Male

DRUGS (4)
  1. IRINOTECAN [Concomitant]
     Active Substance: IRINOTECAN
     Indication: ADENOCARCINOMA PANCREAS
     Dosage: MFOLFIRINOX REGIMEN
     Route: 050
  2. OXALIPLATIN. [Concomitant]
     Active Substance: OXALIPLATIN
     Indication: ADENOCARCINOMA PANCREAS
     Dosage: MFOLFIRINOX REGIMEN
     Route: 050
  3. LEUCOVORIN. [Concomitant]
     Active Substance: LEUCOVORIN
     Indication: ADENOCARCINOMA PANCREAS
     Dosage: MFOLFIRINOX REGIMEN
     Route: 050
  4. 5-FLUOROURACIL [Suspect]
     Active Substance: FLUOROURACIL
     Indication: ADENOCARCINOMA PANCREAS
     Dosage: MFOLFIRINOX REGIMEN
     Route: 050

REACTIONS (3)
  - Cardiotoxicity [Unknown]
  - Arteriospasm coronary [Unknown]
  - Cardiomyopathy [Unknown]
